FAERS Safety Report 8911271 (Version 2)
Quarter: 2013Q4

REPORT INFORMATION
  Report Type: Spontaneous
  Country: US (occurrence: US)
  Receive Date: 20121116
  Receipt Date: 20131217
  Transmission Date: 20140711
  Serious: No
  Sender: FDA-Public Use
  Company Number: US-GLAXOSMITHKLINE-A0994865A

PATIENT
  Age: 51 Year
  Sex: Female

DRUGS (3)
  1. VOTRIENT [Suspect]
     Indication: SOFT TISSUE CANCER
     Dosage: 800MG PER DAY
     Route: 065
  2. SYNTHROID [Concomitant]
  3. COUMADIN [Concomitant]

REACTIONS (5)
  - Hair colour changes [Unknown]
  - Diarrhoea [Unknown]
  - Hypertension [Unknown]
  - Thyroid function test abnormal [Unknown]
  - Blood pressure increased [Unknown]
